FAERS Safety Report 15351747 (Version 3)
Quarter: 2018Q3

REPORT INFORMATION
  Report Type: Spontaneous
  Country: US (occurrence: US)
  Receive Date: 20180905
  Receipt Date: 20180926
  Transmission Date: 20181010
  Serious: No
  Sender: FDA-Public Use
  Company Number: US-SA-2018SA237326

PATIENT
  Age: 72 Year
  Sex: Female

DRUGS (1)
  1. LANTUS SOLOSTAR [Suspect]
     Active Substance: INSULIN GLARGINE
     Indication: TYPE 2 DIABETES MELLITUS
     Dosage: 10 IU, QD EVERY EVENING
     Route: 065

REACTIONS (8)
  - Injection site haemorrhage [Unknown]
  - Injection site nodule [Unknown]
  - Underdose [Unknown]
  - Wrong technique in device usage process [Unknown]
  - Device operational issue [Unknown]
  - Needle issue [Unknown]
  - Angiopathy [Unknown]
  - Injury associated with device [Unknown]
